FAERS Safety Report 15616090 (Version 1)
Quarter: 2018Q4

REPORT INFORMATION
  Report Type: Spontaneous
  Country: US (occurrence: US)
  Receive Date: 20181114
  Receipt Date: 20181114
  Transmission Date: 20190205
  Serious: No
  Sender: FDA-Public Use
  Company Number: US-TEVA-2018-US-974536

PATIENT
  Age: 65 Year
  Sex: Male

DRUGS (1)
  1. LORAZEPAM ACTAVIS [Suspect]
     Active Substance: LORAZEPAM
     Route: 065

REACTIONS (5)
  - Gastrointestinal disorder [Unknown]
  - Musculoskeletal stiffness [Unknown]
  - Product substitution issue [Unknown]
  - Drug ineffective [Unknown]
  - Dizziness [Unknown]
